FAERS Safety Report 9220669 (Version 1)
Quarter: 2013Q1

REPORT INFORMATION
  Report Type: Spontaneous
  Country: US (occurrence: None)
  Receive Date: 20120831
  Receipt Date: 20120831
  Transmission Date: 20140127
  Serious: No
  Sender: FDA-Public Use
  Company Number: 1000029993

PATIENT
  Age: 81 Year
  Sex: Male

DRUGS (11)
  1. DALIRESP (ROFLUMILAST) (500 MICROGRAM, TABLETS) [Suspect]
     Indication: CHRONIC OBSTRUCTIVE PULMONARY DISEASE
     Dates: start: 20120420, end: 20120422
  2. RAMIPRIL (RAMIPRIL) (RAMIPRIL [Concomitant]
  3. HYDROCHLOROTHIAZIDE (HYDROCHLOROTHIAZIDE) (HYDROCHLOROTHIAZIDE) [Concomitant]
  4. SIMVASTATIN (SIMVASTATIN) (SIMVASTATIN) [Concomitant]
  5. DIGOXIN (DIGOXIN) (DIGOXIN) [Concomitant]
  6. ACIPHEX (RABEPRAZOLE SODIUM) (REABEPRAZOLE SODIUM) [Concomitant]
  7. CARVEDILOL (CARVEDILOL) (CARVEDILOL) [Concomitant]
  8. PROVENTIL (ALBUTEROL) (ALBUTEROL) [Concomitant]
  9. ADVAIR (SERETIDE) (SERETIDE) [Concomitant]
  10. SPIRIVA (TIOTROPIUM BROMIDE) (TIOTROPIUM BROMIDE) [Concomitant]
  11. FLONASE (FLUTICASONE PROPIONATE) (FLUTICASONE PROPIONATE) [Concomitant]

REACTIONS (4)
  - Headache [None]
  - Insomnia [None]
  - Diarrhoea [None]
  - Decreased appetite [None]
